FAERS Safety Report 23015327 (Version 4)
Quarter: 2023Q4

REPORT INFORMATION
  Report Type: Report from Study
  Country: US (occurrence: US)
  Receive Date: 20231002
  Receipt Date: 20231218
  Transmission Date: 20240110
  Serious: Yes (Other)
  Sender: FDA-Public Use
  Company Number: US-002147023-NVSC2023US207690

PATIENT
  Sex: Male

DRUGS (7)
  1. ENTRESTO [Suspect]
     Active Substance: SACUBITRIL\VALSARTAN
     Indication: Product used for unknown indication
     Dosage: UNK
     Route: 065
  2. ENTRESTO [Suspect]
     Active Substance: SACUBITRIL\VALSARTAN
     Dosage: UNK
     Route: 065
  3. ENTRESTO [Suspect]
     Active Substance: SACUBITRIL\VALSARTAN
     Dosage: 1 DOSAGE FORM, BID (49/51 MG)
     Route: 065
     Dates: start: 20230818
  4. LOSARTAN [Suspect]
     Active Substance: LOSARTAN
     Indication: Product used for unknown indication
     Dosage: UNK
     Route: 065
  5. LASIX [Concomitant]
     Active Substance: FUROSEMIDE
     Indication: Product used for unknown indication
     Dosage: UNK
     Route: 065
  6. CELLCEPT [Concomitant]
     Active Substance: MYCOPHENOLATE MOFETIL
     Indication: Product used for unknown indication
     Dosage: UNK
     Route: 065
  7. A-HYDROCORT [Concomitant]
     Active Substance: HYDROCORTISONE SODIUM SUCCINATE
     Indication: Product used for unknown indication
     Dosage: UNK
     Route: 065

REACTIONS (16)
  - Systemic lupus erythematosus [Recovered/Resolved]
  - Asthma [Unknown]
  - Dyspnoea [Unknown]
  - Sluggishness [Unknown]
  - Pleural effusion [Unknown]
  - Gait disturbance [Recovering/Resolving]
  - Heart rate increased [Recovering/Resolving]
  - Peripheral swelling [Recovering/Resolving]
  - Fluid retention [Unknown]
  - Feeling abnormal [Unknown]
  - Productive cough [Unknown]
  - Asthenia [Unknown]
  - Fatigue [Recovering/Resolving]
  - Incorrect dose administered [Recovered/Resolved]
  - Contraindicated product administered [Unknown]
  - Drug ineffective [Unknown]
